FAERS Safety Report 16749626 (Version 1)
Quarter: 2019Q3

REPORT INFORMATION
  Report Type: Spontaneous
  Country: UY (occurrence: UY)
  Receive Date: 20190828
  Receipt Date: 20190828
  Transmission Date: 20191005
  Serious: Yes (Hospitalization, Other)
  Sender: FDA-Public Use
  Company Number: UY-PFIZER INC-2019365107

PATIENT
  Age: 8 Year
  Sex: Female

DRUGS (1)
  1. GENOTROPIN [Suspect]
     Active Substance: SOMATROPIN
     Indication: BODY HEIGHT BELOW NORMAL
     Dosage: 0.6 TO 1 MG, SIX TIMES PER WEEK
     Dates: start: 20170622

REACTIONS (3)
  - Gastrooesophageal reflux disease [Recovered/Resolved]
  - Injection site bruising [Recovering/Resolving]
  - Pylorospasm [Recovering/Resolving]

NARRATIVE: CASE EVENT DATE: 201908
